FAERS Safety Report 18338701 (Version 1)
Quarter: 2020Q4

REPORT INFORMATION
  Report Type: Spontaneous
  Country: US (occurrence: US)
  Receive Date: 20201002
  Receipt Date: 20201002
  Transmission Date: 20210113
  Serious: No
  Sender: FDA-Public Use
  Company Number: US-SAREPTA THERAPEUTICS INC.-SRP2020-000887

PATIENT
  Age: 9 Year
  Sex: Female

DRUGS (3)
  1. LMX4 [Concomitant]
     Active Substance: LIDOCAINE
     Indication: LOCAL ANAESTHESIA
     Dosage: AS NEEDED
     Route: 061
  2. EXONDYS 51 [Suspect]
     Active Substance: ETEPLIRSEN
     Indication: DUCHENNE MUSCULAR DYSTROPHY
     Dosage: 700 MG, WEEKLY
     Route: 042
     Dates: start: 20170320, end: 20200630
  3. EXONDYS 51 [Suspect]
     Active Substance: ETEPLIRSEN
     Dosage: 700 MG, WEEKLY
     Route: 042
     Dates: start: 20200814

REACTIONS (2)
  - Device malfunction [Unknown]
  - Product dose omission issue [Unknown]

NARRATIVE: CASE EVENT DATE: 20200706
